FAERS Safety Report 24049296 (Version 1)
Quarter: 2024Q3

REPORT INFORMATION
  Report Type: Spontaneous
  Country: EG (occurrence: EG)
  Receive Date: 20240704
  Receipt Date: 20240704
  Transmission Date: 20241017
  Serious: Yes (Death, Hospitalization, Other)
  Sender: HIKMA
  Company Number: EG-HIKMA PHARMACEUTICALS-EG-H14001-24-05809

PATIENT

DRUGS (3)
  1. CARBOPLATIN [Suspect]
     Active Substance: CARBOPLATIN
     Indication: Lung neoplasm malignant
     Dosage: 611.3 MG/DAY 1 EVERY 3 WEEKS
     Route: 041
     Dates: start: 20240520
  2. GEMCITABINE HYDROCHLORIDE [Suspect]
     Active Substance: GEMCITABINE HYDROCHLORIDE
     Indication: Lung neoplasm malignant
     Dosage: 1650 MG DAY 1,8 /EVERY 3 WEEKS
     Route: 041
     Dates: start: 20240520
  3. GEMCITABINE HYDROCHLORIDE [Suspect]
     Active Substance: GEMCITABINE HYDROCHLORIDE
     Dosage: 1650 MG DAY 1,8 /EVERY 3 WEEKS
     Route: 041
     Dates: start: 20240527

REACTIONS (2)
  - Pancytopenia [Fatal]
  - Gingival bleeding [Fatal]

NARRATIVE: CASE EVENT DATE: 20240603
